FAERS Safety Report 6649377-7 (Version None)
Quarter: 2010Q1

REPORT INFORMATION
  Report Type: 
  Country: None (occurrence: None)
  Receive Date: 20100324
  Receipt Date: 20100315
  Transmission Date: 20100710
  Serious: Yes (Other)
  Sender: FDA-Public Use
  Company Number: JP-PFIZER INC-2010028602

PATIENT
  Age: 71 Year
  Sex: Female
  Weight: 69.6 kg

DRUGS (15)
  1. CHAMPIX [Suspect]
     Indication: NICOTINE DEPENDENCE
     Dosage: 0.5 MG, 1X/DAY
     Route: 048
     Dates: start: 20100219
  2. CHAMPIX [Suspect]
     Dosage: 0.5 MG, 2X/DAY
     Dates: start: 20100222, end: 20100223
  3. ALDACTONE [Concomitant]
     Dosage: UNK
     Route: 048
  4. MICARDIS [Concomitant]
     Dosage: UNK
     Route: 048
  5. DOGMATYL [Concomitant]
     Dosage: UNK
     Route: 048
  6. LAC B [Concomitant]
     Dosage: UNK
     Route: 048
  7. CHLORPHENIRAMINE MALEATE [Concomitant]
     Dosage: UNK
     Route: 048
  8. DOXAZOSIN MESYLATE [Concomitant]
     Dosage: UNK
     Route: 048
  9. MARZULENE S [Concomitant]
     Dosage: UNK
     Route: 048
  10. DIAZEPAM [Concomitant]
     Dosage: UNK
     Route: 048
  11. METHYLEPHEDRINE [Concomitant]
     Dosage: UNK
  12. METHYLEPHEDRINE HYDROCHLORIDE-DL [Concomitant]
  13. LYSOZYME HYDROCHLORIDE [Concomitant]
     Route: 048
     Dates: start: 20100209
  14. MUCOSOLVAN [Concomitant]
     Route: 048
     Dates: start: 20100209
  15. TRANILAST [Concomitant]
     Route: 048
     Dates: start: 20100209

REACTIONS (4)
  - CHOLELITHIASIS [None]
  - CHROMATURIA [None]
  - HEPATIC FUNCTION ABNORMAL [None]
  - JAUNDICE [None]
